FAERS Safety Report 14341045 (Version 2)
Quarter: 2018Q1

REPORT INFORMATION
  Report Type: Spontaneous
  Country: US (occurrence: US)
  Receive Date: 20180102
  Receipt Date: 20180131
  Transmission Date: 20180509
  Serious: No
  Sender: FDA-Public Use
  Company Number: US-B.I. PHARMACEUTICALS,INC./RIDGEFIELD-2017-BI-068788

PATIENT
  Age: 78 Year
  Sex: Female

DRUGS (1)
  1. SPIRIVA [Suspect]
     Active Substance: TIOTROPIUM BROMIDE MONOHYDRATE
     Indication: CHRONIC OBSTRUCTIVE PULMONARY DISEASE
     Dosage: ONCE A DAY;  FORM STRENGTH: 18 MCG; FORM: CAPSULE   ACTION(S) TAKEN WITH PRODUCT: DOSE NOT CHANGED
     Route: 055
     Dates: start: 2013

REACTIONS (3)
  - Medication error [Not Recovered/Not Resolved]
  - Product quality issue [Unknown]
  - Product physical issue [Unknown]

NARRATIVE: CASE EVENT DATE: 201712
